FAERS Safety Report 7807714-1 (Version None)
Quarter: 2011Q4

REPORT INFORMATION
  Report Type: 
  Country: None (occurrence: None)
  Receive Date: 20111011
  Receipt Date: 20111005
  Transmission Date: 20120403
  Serious: Yes (Hospitalization)
  Sender: FDA-Public Use
  Company Number: JP-ACTELION-A-CH2011-55038

PATIENT
  Sex: Female
  Weight: 54 kg

DRUGS (9)
  1. ETIZOLAM [Concomitant]
  2. SERRAPEPTASE [Concomitant]
  3. NIFEDIPINE [Concomitant]
  4. TRACLEER [Suspect]
     Indication: PULMONARY ARTERIAL HYPERTENSION
     Dosage: 62.5 MG, BID
     Route: 048
     Dates: start: 20100210, end: 20100301
  5. NIZATIDINE [Concomitant]
  6. BERAPROST SODIUM [Concomitant]
  7. TEMISARTAN [Concomitant]
  8. TERBINAFINE HCL [Concomitant]
  9. MOSAPRIDE CITRATE [Concomitant]

REACTIONS (7)
  - ASPARTATE AMINOTRANSFERASE INCREASED [None]
  - RESPIRATORY DISORDER [None]
  - BLOOD ALKALINE PHOSPHATASE INCREASED [None]
  - GAMMA-GLUTAMYLTRANSFERASE INCREASED [None]
  - CARDIAC FAILURE [None]
  - LIVER DISORDER [None]
  - OEDEMA PERIPHERAL [None]
